FAERS Safety Report 8357099-X (Version None)
Quarter: 2012Q2

REPORT INFORMATION
  Report Type: 
  Country: None (occurrence: None)
  Receive Date: 20120514
  Receipt Date: 20120509
  Transmission Date: 20120825
  Serious: Yes (Death, Hospitalization)
  Sender: FDA-Public Use
  Company Number: FR-ROCHE-1061474

PATIENT
  Sex: Female
  Weight: 45 kg

DRUGS (4)
  1. TAXOL [Concomitant]
     Indication: OVARIAN CANCER
     Route: 042
     Dates: start: 20120113, end: 20120305
  2. SOMATULINE DEPOT [Concomitant]
     Indication: METASTASES TO PERITONEUM
     Route: 058
     Dates: start: 20120309, end: 20120309
  3. AVASTIN [Suspect]
     Indication: OVARIAN CANCER
     Route: 042
     Dates: start: 20120113, end: 20120305
  4. CARBOPLATIN [Concomitant]
     Indication: OVARIAN CANCER
     Route: 042
     Dates: start: 20120113, end: 20120227

REACTIONS (2)
  - GASTROINTESTINAL PERFORATION [None]
  - PERITONITIS [None]
